FAERS Safety Report 19978661 (Version 2)
Quarter: 2021Q4

REPORT INFORMATION
  Report Type: Report from Study
  Country: IT (occurrence: IT)
  Receive Date: 20211020
  Receipt Date: 20211118
  Transmission Date: 20220303
  Serious: Yes (Death)
  Sender: FDA-Public Use
  Company Number: None

PATIENT
  Age: 76 Year
  Sex: Male
  Weight: 69 kg

DRUGS (17)
  1. CARBOPLATIN [Interacting]
     Active Substance: CARBOPLATIN
     Indication: Lung neoplasm malignant
     Dosage: 10 MG, CYCLIC
     Route: 042
     Dates: start: 20210615, end: 20210803
  2. ALIMTA [Interacting]
     Active Substance: PEMETREXED DISODIUM
     Indication: Lung neoplasm malignant
     Dosage: 500 UNK
     Route: 042
     Dates: start: 20210615, end: 20210803
  3. KEYTRUDA [Interacting]
     Active Substance: PEMBROLIZUMAB
     Indication: Lung neoplasm malignant
     Dosage: 200 MG, CYCLIC
     Route: 041
     Dates: start: 20210615, end: 20210803
  4. SPIRIVA RESPIMAT [Concomitant]
     Active Substance: TIOTROPIUM BROMIDE
     Indication: Chronic obstructive pulmonary disease
     Dosage: 2.5 UG
     Route: 055
     Dates: start: 20210513, end: 20210814
  5. FOSTER [Concomitant]
     Active Substance: BECLOMETHASONE\FORMOTEROL
     Indication: Chronic obstructive pulmonary disease
     Dosage: 100 UG
     Route: 055
     Dates: start: 20210513, end: 20210814
  6. BISOPROLOL [Concomitant]
     Active Substance: BISOPROLOL
     Indication: Hypertension
     Dosage: 1.25 MG
     Route: 048
     Dates: start: 20210513, end: 20210816
  7. PANTOPRAZOLE SODIUM [Concomitant]
     Active Substance: PANTOPRAZOLE SODIUM
     Dosage: 20 MG
     Route: 048
     Dates: start: 20210513, end: 20210816
  8. ASPIRIN [Concomitant]
     Active Substance: ASPIRIN
     Dosage: 100 MG
     Route: 048
     Dates: end: 20210815
  9. RAMIPRIL [Concomitant]
     Active Substance: RAMIPRIL
     Indication: Hypertension
     Dosage: 5 MG
     Route: 048
  10. FOSTER [Concomitant]
     Active Substance: BECLOMETHASONE\FORMOTEROL
     Indication: Chronic obstructive pulmonary disease
     Dosage: 100 UG
     Route: 055
     Dates: start: 20210513, end: 20210814
  11. SPIRIVA RESPIMAT 2,5 MICROGRAMMI, SOLUZIONE PER INALAZIONE [Concomitant]
     Indication: Chronic obstructive pulmonary disease
     Dosage: 2.5 UG
     Route: 055
     Dates: start: 20210513, end: 20210814
  12. BISOPROLOL FUMARATE [Concomitant]
     Active Substance: BISOPROLOL FUMARATE
     Indication: Hypertension
     Dosage: 1.25 MG
     Route: 048
     Dates: start: 20210513, end: 20210816
  13. ALIMTA [Suspect]
     Active Substance: PEMETREXED DISODIUM
     Indication: Lung neoplasm malignant
     Dosage: 500 MG
     Route: 042
     Dates: start: 20210615, end: 20210803
  14. CARBOPLATIN [Suspect]
     Active Substance: CARBOPLATIN
     Indication: Lung neoplasm malignant
     Dosage: 10 MG
     Route: 042
     Dates: start: 20210615, end: 20210803
  15. ASPIRIN [Concomitant]
     Active Substance: ASPIRIN
     Dosage: 100 MG
     Route: 048
     Dates: end: 20210815
  16. TRIATEC  5 MG COMPRESSE [Concomitant]
     Indication: Hypertension
     Dosage: 5 MG
     Route: 048
     Dates: end: 20210823
  17. PANTOPRAZOLE SODIUM [Concomitant]
     Active Substance: PANTOPRAZOLE SODIUM
     Dosage: 20 MG
     Route: 048
     Dates: start: 20210513, end: 20210816

REACTIONS (5)
  - Drug interaction [Fatal]
  - Abdominal pain [Fatal]
  - Pancytopenia [Fatal]
  - Sepsis [Fatal]
  - Hyperpyrexia [Fatal]

NARRATIVE: CASE EVENT DATE: 20210814
